FAERS Safety Report 8760777 (Version 1)
Quarter: 2012Q4

REPORT INFORMATION
  Report Type: 
  Country: DE (occurrence: DE)
  Receive Date: 20120830
  Receipt Date: 20120830
  Transmission Date: 20130627
  Serious: Yes (Other)
  Sender: FDA-Public Use
  Company Number: DE-BIOGENIDEC-2012BI032605

PATIENT
  Age: 42 Year
  Sex: Male
  Weight: 107 kg

DRUGS (3)
  1. AVONEX [Suspect]
     Indication: MULTIPLE SCLEROSIS
     Route: 030
     Dates: start: 20120803, end: 20120803
  2. IBUPROFEN [Concomitant]
     Indication: PROPHYLAXIS
     Dates: start: 20120803, end: 20120803
  3. ASS 400 [Concomitant]
     Indication: PROPHYLAXIS
     Dates: start: 20120804, end: 20120804

REACTIONS (1)
  - Erythema multiforme [Recovered/Resolved]
